FAERS Safety Report 15994323 (Version 1)
Quarter: 2019Q1

REPORT INFORMATION
  Report Type: Report from Study
  Country: BR (occurrence: BR)
  Receive Date: 20190222
  Receipt Date: 20190222
  Transmission Date: 20190418
  Serious: Yes (Other)
  Sender: FDA-Public Use
  Company Number: BR-SA-2019SA007632

PATIENT
  Age: 50 Year
  Sex: Female
  Weight: 61 kg

DRUGS (7)
  1. INSULIN GLARGINE [Suspect]
     Active Substance: INSULIN GLARGINE
     Dosage: 29 IU, QD
     Route: 058
     Dates: start: 2006
  2. INSULIN [Concomitant]
     Active Substance: INSULIN NOS
     Dosage: UNK
     Dates: start: 201507
  3. HUMALOG [Concomitant]
     Active Substance: INSULIN LISPRO
     Indication: TYPE 1 DIABETES MELLITUS
     Dosage: 3 IU WHEN IT IS ABOVE 200 MG/ DL
     Route: 058
  4. INSULIN GLARGINE [Suspect]
     Active Substance: INSULIN GLARGINE
     Indication: TYPE 1 DIABETES MELLITUS
     Dosage: 29 IU, QD
     Route: 058
     Dates: start: 2006
  5. SIMVASTATIN. [Concomitant]
     Active Substance: SIMVASTATIN
     Indication: BLOOD CHOLESTEROL
     Dosage: 1 DF, QD
     Route: 048
  6. PURAN [Concomitant]
     Active Substance: LEVOTHYROXINE SODIUM
     Indication: HYPOTHYROIDISM
     Dosage: 1 DF, QD
     Route: 048
     Dates: start: 201506
  7. HUMALOG [Concomitant]
     Active Substance: INSULIN LISPRO
     Dosage: 1 DF

REACTIONS (5)
  - Device issue [Unknown]
  - Loss of consciousness [Recovered/Resolved]
  - Blood cholesterol increased [Unknown]
  - Hypoglycaemia [Not Recovered/Not Resolved]
  - Hypothyroidism [Unknown]

NARRATIVE: CASE EVENT DATE: 201812
